FAERS Safety Report 5840647-9 (Version None)
Quarter: 2008Q3

REPORT INFORMATION
  Report Type: 
  Country: None (occurrence: None)
  Receive Date: 20080811
  Receipt Date: 20080729
  Transmission Date: 20090109
  Serious: Yes (Other)
  Sender: FDA-Public Use
  Company Number: PHHY2008IT16312

PATIENT
  Sex: Female

DRUGS (1)
  1. ZOMETA [Suspect]

REACTIONS (4)
  - JAW FRACTURE [None]
  - MOUTH ULCERATION [None]
  - TOOTH LOSS [None]
  - ULCER HAEMORRHAGE [None]
